FAERS Safety Report 7276605-X (Version None)
Quarter: 2011Q1

REPORT INFORMATION
  Report Type: 
  Country: None (occurrence: None)
  Receive Date: 20110204
  Receipt Date: 20110131
  Transmission Date: 20110831
  Serious: Yes (Life-Threatening)
  Sender: FDA-Public Use
  Company Number: IT-ASTRAZENECA-2011SE05309

PATIENT
  Sex: Female

DRUGS (2)
  1. ULTIVA [Suspect]
     Indication: GENERAL ANAESTHESIA
     Route: 042
     Dates: start: 20110126, end: 20110126
  2. DIPRIVAN [Suspect]
     Indication: GENERAL ANAESTHESIA
     Dosage: 20 MG/ML
     Route: 042
     Dates: start: 20110126, end: 20110126

REACTIONS (1)
  - HEPATITIS ACUTE [None]
